FAERS Safety Report 9422614 (Version 1)
Quarter: 2013Q3

REPORT INFORMATION
  Report Type: Spontaneous
  Country: US (occurrence: US)
  Receive Date: 20130726
  Receipt Date: 20130726
  Transmission Date: 20140515
  Serious: No
  Sender: FDA-Public Use
  Company Number: US-MYLANLABS-2013S1002442

PATIENT
  Age: 28 Year
  Sex: Female

DRUGS (4)
  1. BUSPIRONE HYDROCHLORIDE TABLETS, USP [Suspect]
     Route: 048
     Dates: start: 2010
  2. SINGULAIR [Concomitant]
     Dosage: HAS USED FOR YEARS
  3. ADVAIR [Concomitant]
     Dosage: HAS USED FOR YEARS
  4. PRO-AIR [Concomitant]
     Dosage: HAS USED FOR YEARS

REACTIONS (3)
  - Somnolence [Not Recovered/Not Resolved]
  - Headache [Not Recovered/Not Resolved]
  - Disturbance in attention [Not Recovered/Not Resolved]
